FAERS Safety Report 5959589-3 (Version None)
Quarter: 2008Q4

REPORT INFORMATION
  Report Type: 
  Country: None (occurrence: None)
  Receive Date: 20081117
  Receipt Date: 20081105
  Transmission Date: 20090506
  Serious: Yes (Hospitalization)
  Sender: FDA-Public Use
  Company Number: 2008-181830-NL

PATIENT
  Age: 73 Year
  Sex: Female

DRUGS (10)
  1. ROCURONIUM BROMIDE [Suspect]
     Indication: MUSCLE RELAXANT THERAPY
     Dosage: 40 MG ONCE INTRAVENOUS BOLUS
     Route: 040
     Dates: start: 20080624, end: 20080624
  2. PROPOFOL [Suspect]
     Indication: INDUCTION OF ANAESTHESIA
     Dosage: 70 MG ONCE INTRAVENOUS (NOS)
     Route: 042
     Dates: start: 20080624
  3. REMIFENTANIL HYDROCHLORIDE [Suspect]
     Indication: INDUCTION OF ANAESTHESIA
     Dosage: INTRAVENOUS DRIP
     Route: 041
     Dates: start: 20080624
  4. ALENDRONATE SODIUM [Concomitant]
  5. MAGNESIUM OXIDE [Concomitant]
  6. DIMETICONE [Concomitant]
  7. PURSENNID /SCH/ [Concomitant]
  8. NORTRIPTYLINE HCL [Concomitant]
  9. GABAPENTIN [Concomitant]
  10. FAMOTIDINE [Concomitant]

REACTIONS (1)
  - PULMONARY OEDEMA [None]
